FAERS Safety Report 5000903-3 (Version None)
Quarter: 2006Q2

REPORT INFORMATION
  Report Type: 
  Country: None (occurrence: None)
  Receive Date: 20060512
  Receipt Date: 20060131
  Transmission Date: 20061013
  Serious: Yes (Hospitalization)
  Sender: FDA-Public Use
  Company Number: US-GLAXOSMITHKLINE-A0591705A

PATIENT
  Age: 57 Year
  Sex: Female

DRUGS (6)
  1. RELAFEN [Suspect]
     Indication: RHEUMATOID ARTHRITIS
     Dosage: 500MG THREE TIMES PER DAY
     Route: 048
  2. CARAFATE [Concomitant]
  3. NEXIUM [Concomitant]
  4. PREDNISONE TAB [Concomitant]
  5. ACTONEL [Concomitant]
  6. HUMIRA [Concomitant]

REACTIONS (1)
  - GASTRIC HAEMORRHAGE [None]
